FAERS Safety Report 8778471 (Version 1)
Quarter: 2012Q4

REPORT INFORMATION
  Report Type: 
  Country: CY (occurrence: CY)
  Receive Date: 20120912
  Receipt Date: 20120912
  Transmission Date: 20130627
  Serious: Yes (Hospitalization, Other)
  Sender: FDA-Public Use
  Company Number: CY-BAYER-2012-092060

PATIENT
  Age: 71 Year
  Sex: Male

DRUGS (5)
  1. XARELTO [Suspect]
     Indication: ATRIAL FIBRILLATION
     Dosage: 20 mg, QD
     Route: 048
     Dates: start: 201207, end: 201208
  2. XARELTO [Interacting]
     Indication: CEREBROVASCULAR ACCIDENT PROPHYLAXIS
  3. ASPIRIN [Interacting]
     Dosage: UNK
     Dates: end: 201208
  4. PERSANTIN [Concomitant]
     Indication: ATRIAL FIBRILLATION
     Dosage: UNK
     Dates: end: 201207
  5. PERSANTIN [Concomitant]
     Indication: CEREBROVASCULAR ACCIDENT PROPHYLAXIS

REACTIONS (2)
  - Cerebral haemorrhage [Recovering/Resolving]
  - Syncope [Recovered/Resolved]
